FAERS Safety Report 25721686 (Version 1)
Quarter: 2025Q3

REPORT INFORMATION
  Report Type: Spontaneous
  Country: CA (occurrence: CA)
  Receive Date: 20250825
  Receipt Date: 20250825
  Transmission Date: 20251020
  Serious: Yes (Hospitalization)
  Sender: MYLAN
  Company Number: CA-MYLANLABS-2025M1071027

PATIENT
  Age: 83 Year
  Sex: Female
  Weight: 40 kg

DRUGS (3)
  1. VERAPAMIL [Suspect]
     Active Substance: VERAPAMIL HYDROCHLORIDE
     Indication: Hypertension
     Dosage: 120 MILLIGRAM, QD (1 EVERY 1 DAYS)
  2. ACETAMINOPHEN [Concomitant]
     Active Substance: ACETAMINOPHEN
  3. POLYETHYLENE GLYCOL [Concomitant]
     Active Substance: POLYETHYLENE GLYCOL

REACTIONS (4)
  - Dizziness [Recovered/Resolved]
  - Palpitations [Recovered/Resolved]
  - Incorrect product administration duration [Unknown]
  - Incorrect product formulation administered [Unknown]
